FAERS Safety Report 9749746 (Version 1)
Quarter: 2013Q4

REPORT INFORMATION
  Report Type: Spontaneous
  Country: US (occurrence: US)
  Receive Date: 20131212
  Receipt Date: 20131212
  Transmission Date: 20140711
  Serious: No
  Sender: FDA-Public Use
  Company Number: US-TEVA-395150USA

PATIENT
  Age: 21 Year
  Sex: Female
  Weight: 74.91 kg

DRUGS (1)
  1. PARAGARD 380A [Suspect]
     Indication: CONTRACEPTION
     Route: 015
     Dates: start: 20130107, end: 20130315

REACTIONS (1)
  - Contraception [Recovered/Resolved]
